FAERS Safety Report 7901819-2 (Version None)
Quarter: 2011Q4

REPORT INFORMATION
  Report Type: 
  Country: None (occurrence: None)
  Receive Date: 20111108
  Receipt Date: 20111030
  Transmission Date: 20120403
  Serious: Yes (Other)
  Sender: FDA-Public Use
  Company Number: PHEH2011US08264

PATIENT
  Sex: Male

DRUGS (1)
  1. DIOVAN [Suspect]
     Indication: HYPERTENSION
     Dosage: UNK UKN, UNK
     Dates: start: 20060101, end: 20110915

REACTIONS (5)
  - RASH [None]
  - GASTROOESOPHAGEAL REFLUX DISEASE [None]
  - SYSTEMIC LUPUS ERYTHEMATOSUS [None]
  - RASH PRURITIC [None]
  - ANTINUCLEAR ANTIBODY POSITIVE [None]
